FAERS Safety Report 5157523-X (Version None)
Quarter: 2006Q4

REPORT INFORMATION
  Report Type: 
  Country: None (occurrence: None)
  Receive Date: 20061127
  Receipt Date: 20061106
  Transmission Date: 20070319
  Serious: Yes (Hospitalization)
  Sender: FDA-Public Use
  Company Number: FR-GLAXOSMITHKLINE-B0445425A

PATIENT
  Age: 41 Year
  Sex: Female
  Weight: 37 kg

DRUGS (1)
  1. ZELITREX [Suspect]
     Route: 065
     Dates: start: 20060728, end: 20060804

REACTIONS (2)
  - APLASIA [None]
  - PANCYTOPENIA [None]
